FAERS Safety Report 8369450-5 (Version None)
Quarter: 2012Q2

REPORT INFORMATION
  Report Type: 
  Country: None (occurrence: None)
  Receive Date: 20120517
  Receipt Date: 20120517
  Transmission Date: 20120825
  Serious: Yes (Hospitalization, Disabling)
  Sender: FDA-Public Use
  Company Number: None

PATIENT
  Age: 34 Year
  Sex: Female
  Weight: 54.4316 kg

DRUGS (2)
  1. RISPERDAL [Suspect]
     Dosage: 37.5 MG 2X AM ________ ; 25 MG 2X AM _______
     Dates: start: 20051001, end: 20120501
  2. RISPERDAL [Suspect]
     Dosage: 37.5 MG 2X AM ________ ; 25 MG 2X AM _______
     Dates: start: 20040101, end: 20050101

REACTIONS (7)
  - DYSPNOEA [None]
  - SPEECH DISORDER [None]
  - HYPOAESTHESIA [None]
  - MOOD ALTERED [None]
  - CONFUSIONAL STATE [None]
  - MUSCULOSKELETAL STIFFNESS [None]
  - HEART RATE ABNORMAL [None]
